FAERS Safety Report 17699690 (Version 3)
Quarter: 2020Q2

REPORT INFORMATION
  Report Type: Spontaneous
  Country: FR (occurrence: FR)
  Receive Date: 20200423
  Receipt Date: 20200506
  Transmission Date: 20200714
  Serious: Yes (Other)
  Sender: FDA-Public Use
  Company Number: FR-PFIZER INC-2020160131

PATIENT
  Age: 29 Year
  Sex: Female
  Weight: 70 kg

DRUGS (10)
  1. CETIRIZINE HYDROCHLORIDE. [Concomitant]
     Active Substance: CETIRIZINE HYDROCHLORIDE
     Dosage: UNK
  2. BETNEVAL NEOMYCINE [Concomitant]
     Active Substance: BETAMETHASONE\NEOMYCIN
     Dosage: UNK
  3. FUMAFER [Concomitant]
     Active Substance: FERROUS FUMARATE
     Dosage: UNK
  4. LYRICA [Suspect]
     Active Substance: PREGABALIN
     Dosage: 100 MG, 1X/DAY (100 MILLIGRAM, QD)
     Route: 048
     Dates: start: 20200319
  5. MORPHINE [Concomitant]
     Active Substance: MORPHINE
     Dosage: UNK
  6. OFLOCET [OFLOXACIN] [Suspect]
     Active Substance: OFLOXACIN
     Indication: BACTERIAL INFECTION
     Dosage: 400 MG, 1X/DAY (400 MILLIGRAM, QD)
     Route: 065
     Dates: start: 20200319
  7. ALPRAZOLAM. [Concomitant]
     Active Substance: ALPRAZOLAM
     Dosage: UNK
  8. LANSOPRAZOLE. [Suspect]
     Active Substance: LANSOPRAZOLE
     Dosage: 30 MG, 1X/DAY (30 MILLIGRAM, QD)
     Route: 048
     Dates: start: 20200320
  9. BACTRIM [Suspect]
     Active Substance: SULFAMETHOXAZOLE\TRIMETHOPRIM
     Indication: BACTERIAL INFECTION
     Dosage: 2400 MG, 1X/DAY (2400 MILLIGRAM, QD)
     Route: 048
     Dates: start: 20200319, end: 20200331
  10. LOVENOX [Concomitant]
     Active Substance: ENOXAPARIN SODIUM
     Dosage: UNK

REACTIONS (2)
  - Neutropenia [Recovered/Resolved]
  - Lymphopenia [Recovered/Resolved]

NARRATIVE: CASE EVENT DATE: 20200319
